FAERS Safety Report 5920222-8 (Version None)
Quarter: 2008Q4

REPORT INFORMATION
  Report Type: 
  Country: None (occurrence: None)
  Receive Date: 20081016
  Receipt Date: 20080218
  Transmission Date: 20090506
  Serious: No
  Sender: FDA-Public Use
  Company Number: A0710254A

PATIENT
  Age: 1 Year
  Sex: Male

DRUGS (2)
  1. CEFTIN [Suspect]
     Indication: OTITIS MEDIA ACUTE
     Dosage: 250MG TWICE PER DAY
     Route: 048
     Dates: start: 20080211, end: 20080214
  2. NO CONCURRENT MEDICATION [Concomitant]

REACTIONS (2)
  - LETHARGY [None]
  - PRODUCT QUALITY ISSUE [None]
